FAERS Safety Report 17095268 (Version 1)
Quarter: 2019Q4

REPORT INFORMATION
  Report Type: Spontaneous
  Country: US (occurrence: US)
  Receive Date: 20191104
  Receipt Date: 20191104
  Transmission Date: 20200122
  Serious: Yes (Hospitalization)
  Sender: FDA-Public Use
  Company Number: None

PATIENT
  Age: 61 Year
  Sex: Female

DRUGS (4)
  1. TIKOSYN [Concomitant]
     Active Substance: DOFETILIDE
  2. TADALAFIL. [Concomitant]
     Active Substance: TADALAFIL
  3. LETARIS [Concomitant]
     Active Substance: AMBRISENTAN
  4. AMBRISENTAN 10MG [Suspect]
     Active Substance: AMBRISENTAN
     Indication: PULMONARY HYPERTENSION
     Route: 048
     Dates: start: 20190910

REACTIONS (1)
  - Swelling [None]

NARRATIVE: CASE EVENT DATE: 20191101
